FAERS Safety Report 4709190-4 (Version None)
Quarter: 2005Q3

REPORT INFORMATION
  Report Type: 
  Country: None (occurrence: None)
  Receive Date: 20050707
  Receipt Date: 20050707
  Transmission Date: 20060218
  Serious: No
  Sender: FDA-Public Use
  Company Number: None

PATIENT
  Age: 19 Year
  Sex: Female

DRUGS (1)
  1. RHOGAM [Suspect]

REACTIONS (3)
  - CHEST PAIN [None]
  - DIZZINESS [None]
  - FLUSHING [None]
